FAERS Safety Report 9836762 (Version 5)
Quarter: 2017Q1

REPORT INFORMATION
  Report Type: Spontaneous
  Country: US (occurrence: US)
  Receive Date: 20140123
  Receipt Date: 20170126
  Transmission Date: 20170429
  Serious: No
  Sender: FDA-Public Use
  Company Number: US-PFIZER INC-2014016153

PATIENT
  Age: 69 Year
  Sex: Female
  Weight: 95.24 kg

DRUGS (8)
  1. CALCIUM WITH VITAMIN D [Concomitant]
     Active Substance: CALCIUM\VITAMIN D
     Dosage: UNK, 1X/DAY (CALCIUM CARBONATE: 500 MG; COLECALCIFEROL: 630 MG)
     Dates: start: 2007
  2. XELJANZ [Suspect]
     Active Substance: TOFACITINIB CITRATE
     Dosage: 20 MG, DAILY (4 OF THE 5MG TABS OF XELJANZ PER DAY)
  3. PREDNISONE. [Concomitant]
     Active Substance: PREDNISONE
     Indication: RHEUMATOID ARTHRITIS
     Dosage: 5 MG, 2X/DAY (5MG IN MORNING AND 5MG AT NIGHT)
     Dates: start: 2007
  4. XELJANZ [Suspect]
     Active Substance: TOFACITINIB CITRATE
     Indication: RHEUMATOID ARTHRITIS
     Dosage: 1 DF, 1X/DAY (1 A DAY)
  5. XELJANZ [Suspect]
     Active Substance: TOFACITINIB CITRATE
     Dosage: 5 MG, 2X/DAY (TAKES ONE IN THE MORNING, AND ONE IN THE EVENING)
     Dates: start: 2013
  6. SULFASALAZINE. [Concomitant]
     Active Substance: SULFASALAZINE
     Indication: RHEUMATOID ARTHRITIS
     Dosage: 3000 MG, 1X/DAY (500MG TABLET, 3 IN MORNING AND 3 AT NIGHT)
     Dates: start: 2009
  7. LISINOPRIL. [Concomitant]
     Active Substance: LISINOPRIL
     Indication: HYPERTENSION
     Dosage: 10 MG, DAILY
     Dates: start: 2007
  8. FOLIC ACID. [Concomitant]
     Active Substance: FOLIC ACID
     Dosage: 1 MG, DAILY
     Dates: start: 2007

REACTIONS (5)
  - Drug ineffective [Unknown]
  - Fungal infection [Unknown]
  - Nodule [Unknown]
  - Prescribed overdose [Unknown]
  - Herpes zoster [Recovered/Resolved]

NARRATIVE: CASE EVENT DATE: 20151028
